FAERS Safety Report 17313217 (Version 1)
Quarter: 2020Q1

REPORT INFORMATION
  Report Type: Spontaneous
  Country: US (occurrence: US)
  Receive Date: 20200107
  Receipt Date: 20200107
  Transmission Date: 20200409
  Serious: No
  Sender: FDA-Public Use
  Company Number: None

PATIENT
  Age: 55 Year
  Sex: Female

DRUGS (1)
  1. MAVYRET [Suspect]
     Active Substance: GLECAPREVIR\PIBRENTASVIR
     Dosage: OTHER DOSE:300MG-120MG;
     Route: 048
     Dates: start: 20191209

REACTIONS (3)
  - Insomnia [None]
  - Weight increased [None]
  - Taste disorder [None]

NARRATIVE: CASE EVENT DATE: 20200107
